FAERS Safety Report 23339578 (Version 1)
Quarter: 2023Q4

REPORT INFORMATION
  Report Type: Spontaneous
  Country: None (occurrence: CA)
  Receive Date: 20231226
  Receipt Date: 20231226
  Transmission Date: 20240110
  Serious: Yes (Hospitalization, Other)
  Sender: FDA-Public Use
  Company Number: CA-Harrow Eye-2149742

PATIENT
  Age: 32 Year
  Sex: Female

DRUGS (9)
  1. MOXEZA [Suspect]
     Active Substance: MOXIFLOXACIN HYDROCHLORIDE
     Indication: Product used for unknown indication
     Route: 065
  2. CLOFAZIMINE [Suspect]
     Active Substance: CLOFAZIMINE
     Route: 065
     Dates: start: 20231109, end: 20231205
  3. AZITHROMYCIN ANHYDROUS [Suspect]
     Active Substance: AZITHROMYCIN ANHYDROUS
     Dates: start: 20230901
  4. ETHAMBUTOL [Suspect]
     Active Substance: ETHAMBUTOL HYDROCHLORIDE
     Route: 065
     Dates: start: 20230901
  5. RIFABUTIN [Suspect]
     Active Substance: RIFABUTIN
     Route: 065
     Dates: start: 20230901
  6. AMIKACIN SULFATE [Suspect]
     Active Substance: AMIKACIN SULFATE
     Route: 065
     Dates: start: 20230901, end: 20231016
  7. LINEZOLID [Suspect]
     Active Substance: LINEZOLID
  8. DOXYCYCLINE [Suspect]
     Active Substance: DOXYCYCLINE
     Route: 065
  9. SULFAMETHOXAZOLE\TRIMETHOPRIM [Suspect]
     Active Substance: SULFAMETHOXAZOLE\TRIMETHOPRIM
     Route: 065

REACTIONS (5)
  - Mycobacterium avium complex infection [Unknown]
  - Pneumonia [Unknown]
  - Disseminated mycobacterium avium complex infection [Unknown]
  - Deafness neurosensory [Unknown]
  - Drug resistance [Unknown]
